FAERS Safety Report 6580411-9 (Version None)
Quarter: 2010Q1

REPORT INFORMATION
  Report Type: 
  Country: None (occurrence: None)
  Receive Date: 20100212
  Receipt Date: 20100205
  Transmission Date: 20100710
  Serious: Yes (Hospitalization, Other)
  Sender: FDA-Public Use
  Company Number: PHHY2010JP06748

PATIENT
  Sex: Female

DRUGS (12)
  1. COMTAN CMT+TAB [Suspect]
     Indication: DRUG EFFECT DECREASED
     Dosage: 700 MG DAILY
     Route: 048
     Dates: start: 20081007
  2. COMTAN CMT+TAB [Suspect]
     Dosage: 350 MG DAILY
     Dates: start: 20090418, end: 20090529
  3. COMTAN CMT+TAB [Suspect]
     Dosage: 400 MG DAILY
     Route: 048
     Dates: start: 20090530, end: 20090101
  4. CARBIDOPA AND LEVODOPA [Suspect]
     Indication: PARKINSON'S DISEASE
     Dosage: 700 MG DAILY
     Route: 048
     Dates: start: 20070109, end: 20090417
  5. CARBIDOPA AND LEVODOPA [Suspect]
     Dosage: 350MG DAILY
     Route: 048
     Dates: start: 20090418, end: 20090512
  6. CARBIDOPA AND LEVODOPA [Suspect]
     Dosage: 400 MG DAILY
     Dates: start: 20090513
  7. SELEGILINE HYDROCHLORIDE [Suspect]
     Indication: PARKINSON'S DISEASE
     Dosage: 7.5 MG DAILY
     Route: 048
     Dates: start: 20090126, end: 20090427
  8. CABASER [Concomitant]
     Indication: PARKINSON'S DISEASE
     Dosage: UNK
     Dates: start: 20060807
  9. DROXIDOPA [Concomitant]
     Indication: PARKINSON'S DISEASE
     Dosage: UNK
     Route: 048
     Dates: start: 20070710
  10. AROTINOLOL HYDROCHLORIDE [Concomitant]
     Dosage: UNK
     Route: 048
     Dates: start: 20051101
  11. RIVOTRIL [Concomitant]
     Dosage: UNK
     Route: 048
     Dates: start: 20060922
  12. VESICARE [Concomitant]
     Dosage: UNK
     Route: 048
     Dates: start: 20090126

REACTIONS (8)
  - CONDITION AGGRAVATED [None]
  - DELIRIUM [None]
  - DELUSION [None]
  - DYSKINESIA [None]
  - HALLUCINATION [None]
  - PUBIS FRACTURE [None]
  - RIB FRACTURE [None]
  - ROAD TRAFFIC ACCIDENT [None]
